FAERS Safety Report 13086488 (Version 1)
Quarter: 2017Q1

REPORT INFORMATION
  Report Type: Spontaneous
  Country: FR (occurrence: FR)
  Receive Date: 20170104
  Receipt Date: 20170104
  Transmission Date: 20170428
  Serious: Yes (Hospitalization, Other)
  Sender: FDA-Public Use
  Company Number: FR-GILEAD-2017-0251690

PATIENT
  Age: 62 Year
  Sex: Male

DRUGS (4)
  1. LEVOTHYROXINE. [Concomitant]
     Active Substance: LEVOTHYROXINE
  2. BACTRIM [Concomitant]
     Active Substance: SULFAMETHOXAZOLE\TRIMETHOPRIM
     Dosage: UNK
  3. ZYDELIG [Suspect]
     Active Substance: IDELALISIB
     Indication: B-CELL LYMPHOMA
     Dosage: UNK
     Route: 048
     Dates: start: 201607, end: 20161025
  4. ZELITREX [Concomitant]
     Active Substance: VALACYCLOVIR HYDROCHLORIDE

REACTIONS (4)
  - Gastrointestinal bacterial infection [Recovering/Resolving]
  - Off label use [Recovered/Resolved]
  - Oesophageal ulcer [Recovering/Resolving]
  - Candida infection [Recovering/Resolving]

NARRATIVE: CASE EVENT DATE: 201607
